FAERS Safety Report 11175197 (Version 1)
Quarter: 2015Q2

REPORT INFORMATION
  Report Type: Spontaneous
  Country: US (occurrence: None)
  Receive Date: 20150515
  Receipt Date: 20150515
  Transmission Date: 20150821
  Serious: Yes (Other)
  Sender: FDA-Public Use
  Company Number: 122780

PATIENT
  Age: 62 Year
  Sex: Female
  Weight: 88.4 kg

DRUGS (1)
  1. CIMZIA [Suspect]
     Active Substance: CERTOLIZUMAB PEGOL
     Indication: PSORIATIC ARTHROPATHY
     Dosage: DISCARDED SYRINGES AFTER SECOND DOSE
     Route: 058
     Dates: start: 201403, end: 201404

REACTIONS (3)
  - Brain cancer metastatic [None]
  - Arthralgia [None]
  - Lung neoplasm malignant [None]

NARRATIVE: CASE EVENT DATE: 201404
